FAERS Safety Report 7741733-9 (Version None)
Quarter: 2011Q3

REPORT INFORMATION
  Report Type: 
  Country: None (occurrence: None)
  Receive Date: 20110912
  Receipt Date: 20110831
  Transmission Date: 20111222
  Serious: Yes (Hospitalization)
  Sender: FDA-Public Use
  Company Number: US-BIOGENIDEC-2010BI014809

PATIENT
  Sex: Female
  Weight: 72 kg

DRUGS (1)
  1. AVONEX [Suspect]
     Indication: MULTIPLE SCLEROSIS
     Route: 030
     Dates: start: 19961121

REACTIONS (11)
  - OSTEOARTHRITIS [None]
  - JOINT INJURY [None]
  - URINARY INCONTINENCE [None]
  - PARAESTHESIA [None]
  - MULTIPLE SCLEROSIS [None]
  - DRUG SPECIFIC ANTIBODY PRESENT [None]
  - MALAISE [None]
  - ARTHRITIS [None]
  - MUSCLE SPASMS [None]
  - NEURALGIA [None]
  - DRUG INEFFECTIVE [None]
